FAERS Safety Report 17574857 (Version 1)
Quarter: 2020Q1

REPORT INFORMATION
  Report Type: Other
  Country: FR (occurrence: FR)
  Receive Date: 20200324
  Receipt Date: 20200324
  Transmission Date: 20200409
  Serious: Yes (Other)
  Sender: FDA-Public Use
  Company Number: FR-DENTSPLY-2020SCDP000101

PATIENT
  Age: 56 Year
  Sex: Male

DRUGS (3)
  1. KENACORT [Suspect]
     Active Substance: TRIAMCINOLONE
     Indication: ARTHROPATHY
     Dosage: 2 MILLILITER, TOTAL
     Route: 014
     Dates: start: 20200129, end: 20200129
  2. XYLOCAINE WITH ADRENALINE (EPINEPHRINE) [Suspect]
     Active Substance: EPINEPHRINE BITARTRATE\LIDOCAINE HYDROCHLORIDE
     Indication: LOCAL ANAESTHESIA
     Dosage: 15 MILLILITER, TOTAL
     Route: 050
     Dates: start: 20200129, end: 20200129
  3. VISIPAQUE [Suspect]
     Active Substance: IODIXANOL
     Indication: ARTHROPATHY
     Dosage: 1 MILLILITER, TOTAL
     Route: 014
     Dates: start: 20200129, end: 20200129

REACTIONS (1)
  - Transient ischaemic attack [Recovered/Resolved]

NARRATIVE: CASE EVENT DATE: 20200129
